FAERS Safety Report 23065525 (Version 1)
Quarter: 2023Q4

REPORT INFORMATION
  Report Type: Spontaneous
  Country: US (occurrence: US)
  Receive Date: 20231013
  Receipt Date: 20231013
  Transmission Date: 20240109
  Serious: Yes (Hospitalization)
  Sender: FDA-Public Use
  Company Number: US-PRINSTON PHARMACEUTICAL INC.-2023PRN00515

PATIENT
  Age: 90 Year
  Sex: Female

DRUGS (2)
  1. METOPROLOL SUCCINATE [Suspect]
     Active Substance: METOPROLOL SUCCINATE
     Indication: Tachycardia
  2. AMIODARONE [Concomitant]
     Active Substance: AMIODARONE
     Indication: Tachycardia

REACTIONS (1)
  - BRASH syndrome [Recovered/Resolved]
